FAERS Safety Report 10094000 (Version 1)
Quarter: 2014Q2

REPORT INFORMATION
  Report Type: Spontaneous
  Country: US (occurrence: US)
  Receive Date: 20140422
  Receipt Date: 20140422
  Transmission Date: 20141212
  Serious: Yes (Other)
  Sender: FDA-Public Use
  Company Number: US-AMGEN INC.-USASP2014028550

PATIENT
  Age: 71 Year
  Sex: Female

DRUGS (1)
  1. EPOGEN [Suspect]
     Indication: RENAL FAILURE CHRONIC
     Dosage: 1500 UNIT, 3 TIMES/WK
     Route: 065
     Dates: start: 20121207

REACTIONS (1)
  - Salivary gland cancer [Recovered/Resolved]
